FAERS Safety Report 8292764-4 (Version None)
Quarter: 2012Q2

REPORT INFORMATION
  Report Type: 
  Country: None (occurrence: None)
  Receive Date: 20120417
  Receipt Date: 20110404
  Transmission Date: 20120825
  Serious: No
  Sender: FDA-Public Use
  Company Number: US-ASTRAZENECA-2011SE18762

PATIENT
  Age: 59 Year
  Sex: Female
  Weight: 63.5 kg

DRUGS (9)
  1. ULTRAM [Concomitant]
     Indication: BACK PAIN
  2. LORAZEPAM [Concomitant]
     Indication: ANXIETY
  3. PREMPRO [Concomitant]
  4. TRIAMETERENE HCTZ [Concomitant]
     Indication: HYPERTENSION
  5. NEXIUM [Suspect]
     Indication: GASTROOESOPHAGEAL REFLUX DISEASE
     Route: 048
     Dates: start: 20100101, end: 20110301
  6. NEXIUM [Suspect]
     Route: 048
     Dates: start: 20110401
  7. SYNTHROID [Concomitant]
     Indication: THYROID DISORDER
  8. LOVASTATIN [Concomitant]
     Indication: HYPERCHOLESTEROLAEMIA
  9. CYMBALTA [Concomitant]
     Indication: ANXIETY

REACTIONS (2)
  - CONDITION AGGRAVATED [None]
  - DRUG INEFFECTIVE [None]
